FAERS Safety Report 8574631-1 (Version None)
Quarter: 2012Q3

REPORT INFORMATION
  Report Type: 
  Country: None (occurrence: None)
  Receive Date: 20120807
  Receipt Date: 20120725
  Transmission Date: 20120928
  Serious: No
  Sender: FDA-Public Use
  Company Number: US-009507513-1207USA011531

PATIENT

DRUGS (7)
  1. SINGULAIR [Concomitant]
  2. ANTIMICROBIAL (UNSPECIFIED) [Concomitant]
  3. LISINOPRIL [Concomitant]
  4. ZYRTEC [Concomitant]
  5. MOBIC [Concomitant]
  6. ASMANEX TWISTHALER [Suspect]
     Indication: ASTHMA
     Dosage: UNK
     Route: 048
     Dates: start: 20120101
  7. TOPAMAX [Concomitant]

REACTIONS (2)
  - ASTHMA [None]
  - PRODUCT QUALITY ISSUE [None]
